FAERS Safety Report 7213992-2 (Version None)
Quarter: 2011Q1

REPORT INFORMATION
  Report Type: 
  Country: None (occurrence: None)
  Receive Date: 20110106
  Receipt Date: 20110104
  Transmission Date: 20110831
  Serious: Yes (Hospitalization)
  Sender: FDA-Public Use
  Company Number: US-AMGEN-USASP2011000644

PATIENT

DRUGS (4)
  1. CORTICOSTEROIDS [Concomitant]
     Indication: IDIOPATHIC THROMBOCYTOPENIC PURPURA
  2. IVIGLOB-EX [Concomitant]
     Indication: IDIOPATHIC THROMBOCYTOPENIC PURPURA
  3. NPLATE [Suspect]
     Dosage: 84 A?G/KG, UNK
     Dates: start: 20090522
  4. NPLATE [Suspect]
     Indication: IDIOPATHIC THROMBOCYTOPENIC PURPURA
     Dosage: 1 A?G/KG, UNK
     Dates: start: 20090210

REACTIONS (1)
  - PLATELET COUNT ABNORMAL [None]
